FAERS Safety Report 7042543-0 (Version None)
Quarter: 2010Q4

REPORT INFORMATION
  Report Type: 
  Country: None (occurrence: None)
  Receive Date: 20101013
  Receipt Date: 20100511
  Transmission Date: 20110411
  Serious: No
  Sender: FDA-Public Use
  Company Number: US-ASTRAZENECA-2010SE21757

PATIENT
  Age: 51 Year
  Sex: Male

DRUGS (3)
  1. SYMBICORT [Suspect]
     Indication: ASTHMA
     Dosage: 160 MCG ONE PUFF BID
     Route: 055
     Dates: start: 20100511
  2. SYMBICORT [Suspect]
     Dosage: 160 MCG TWO PUFFS BID
     Route: 055
  3. MANY OTHER MEDICATIONS [Concomitant]

REACTIONS (4)
  - BLOOD PRESSURE INCREASED [None]
  - DYSPNOEA [None]
  - ERYTHEMA [None]
  - PANIC ATTACK [None]
